FAERS Safety Report 4608634-6 (Version None)
Quarter: 2005Q1

REPORT INFORMATION
  Report Type: 
  Country: None (occurrence: None)
  Receive Date: 20050315
  Receipt Date: 20050304
  Transmission Date: 20050727
  Serious: Yes (Hospitalization)
  Sender: FDA-Public Use
  Company Number: FR-BRISTOL-MYERS SQUIBB COMPANY-12891271

PATIENT
  Age: 48 Year
  Sex: Male

DRUGS (4)
  1. ENDOXAN [Suspect]
     Indication: SMALL CELL LUNG CANCER STAGE UNSPECIFIED
     Dosage: START DATE:  05-JAN-2005
     Dates: start: 20050207, end: 20050207
  2. ETOPOSIDE [Suspect]
     Indication: SMALL CELL LUNG CANCER STAGE UNSPECIFIED
     Dosage: START DATE:  05-JAN-2005
     Dates: start: 20050207, end: 20050207
  3. CISPLATIN [Suspect]
     Indication: SMALL CELL LUNG CANCER STAGE UNSPECIFIED
     Dosage: START DATE:  05-JAN-2005
     Dates: start: 20050207, end: 20050207
  4. EPIRUBICIN [Suspect]
     Indication: SMALL CELL LUNG CANCER STAGE UNSPECIFIED
     Dosage: START DATE:  05-JAN-2005
     Dates: start: 20050207, end: 20050207

REACTIONS (3)
  - LUNG DISORDER [None]
  - PULMONARY HYPERTENSION [None]
  - SCAN ABNORMAL [None]
